FAERS Safety Report 4400081-5 (Version None)
Quarter: 2004Q3

REPORT INFORMATION
  Report Type: 
  Country: None (occurrence: None)
  Receive Date: 20040716
  Receipt Date: 20040315
  Transmission Date: 20050211
  Serious: Yes (Hospitalization)
  Sender: FDA-Public Use
  Company Number: US-MERCK-0403USA01343

PATIENT
  Age: 63 Year
  Sex: Male

DRUGS (5)
  1. LIPITOR [Concomitant]
     Route: 065
  2. PRINIVIL [Concomitant]
     Route: 048
  3. PROTONIX [Concomitant]
     Route: 065
  4. VIOXX [Suspect]
     Indication: ARTHRALGIA
     Route: 048
     Dates: start: 20010103, end: 20010913
  5. ZOCOR [Concomitant]
     Route: 048

REACTIONS (7)
  - CEREBROVASCULAR ACCIDENT [None]
  - CHEST PAIN [None]
  - DEHYDRATION [None]
  - EYE IRRITATION [None]
  - HEPATIC ENZYME INCREASED [None]
  - RASH PRURITIC [None]
  - SKIN LESION [None]
